FAERS Safety Report 4570162-4 (Version None)
Quarter: 2005Q1

REPORT INFORMATION
  Report Type: 
  Country: None (occurrence: None)
  Receive Date: 20050118
  Receipt Date: 20040708
  Transmission Date: 20050727
  Serious: Yes (Other)
  Sender: FDA-Public Use
  Company Number: HQWYE979212JUL04

PATIENT
  Age: 46 Year
  Sex: Female

DRUGS (1)
  1. PREMPRO [Suspect]
     Dates: start: 19990101, end: 19990601

REACTIONS (1)
  - CEREBROVASCULAR ACCIDENT [None]
